FAERS Safety Report 12391150 (Version 2)
Quarter: 2016Q2

REPORT INFORMATION
  Report Type: Spontaneous
  Country: US (occurrence: US)
  Receive Date: 20160520
  Receipt Date: 20160617
  Transmission Date: 20160815
  Serious: Yes (Other)
  Sender: FDA-Public Use
  Company Number: US-PFIZER INC-2016265934

PATIENT
  Age: 58 Year
  Sex: Male

DRUGS (1)
  1. VIAGRA [Suspect]
     Active Substance: SILDENAFIL CITRATE
     Indication: ERECTILE DYSFUNCTION
     Dosage: UNK (TAKING 1/2 50 MG OR 50MG)
     Route: 048
     Dates: start: 201509, end: 201605

REACTIONS (2)
  - Conjunctival haemorrhage [Recovered/Resolved]
  - Eye haemorrhage [Recovered/Resolved]
